FAERS Safety Report 8526349 (Version 8)
Quarter: 2015Q2

REPORT INFORMATION
  Report Type: Report from Study
  Country: KR (occurrence: KR)
  Receive Date: 20120423
  Receipt Date: 20150528
  Transmission Date: 20150821
  Serious: Yes (Death, Hospitalization)
  Sender: FDA-Public Use
  Company Number: KR-UCBSA-055230

PATIENT
  Age: 65 Year
  Sex: Female
  Weight: 55.5 kg

DRUGS (221)
  1. TRANEXAMIC ACID. [Concomitant]
     Active Substance: TRANEXAMIC ACID
     Dosage: 1000 MG, ONCE DAILY (QD)
     Route: 042
     Dates: start: 20120416, end: 20120417
  2. NORMAL SALINE [Concomitant]
     Active Substance: SODIUM CHLORIDE
     Dosage: BG
     Route: 042
     Dates: start: 20120427, end: 20120427
  3. NORMAL SALINE [Concomitant]
     Active Substance: SODIUM CHLORIDE
     Dosage: BG
     Route: 042
     Dates: start: 20120428, end: 20120428
  4. NORMAL SALINE [Concomitant]
     Active Substance: SODIUM CHLORIDE
     Dosage: 100 ML, ONCE DAILY (QD)
     Route: 042
     Dates: start: 20120709, end: 20120709
  5. NORMAL SALINE [Concomitant]
     Active Substance: SODIUM CHLORIDE
     Dosage: 10 ML, 4X/DAY (QID)
     Route: 055
     Dates: start: 20120723, end: 20120724
  6. NORMAL SALINE [Concomitant]
     Active Substance: SODIUM CHLORIDE
     Dosage: 500 ML AND 100 ML
     Route: 042
     Dates: start: 20120830, end: 20120901
  7. CEFODIZIME SODIUM [Concomitant]
     Active Substance: CEFODIZIME SODIUM
     Indication: PROPHYLAXIS
     Dosage: 2 G, 2X/DAY (BID)
     Route: 042
     Dates: start: 20120411, end: 20120426
  8. LEVO-CLOPERASTINE FENDIZOATE [Concomitant]
     Dosage: 5 ML, 3X/DAY (TID)
     Route: 048
     Dates: start: 20120730, end: 20120813
  9. LEVO-CLOPERASTINE FENDIZOATE [Concomitant]
     Dosage: 5 ML, 3X/DAY (TID)
     Route: 048
     Dates: start: 20121016, end: 20121113
  10. CODEINE PHOSPHATE [Concomitant]
     Active Substance: CODEINE PHOSPHATE
     Dosage: 20 MG, 4X/DAY (QID)
     Route: 048
     Dates: start: 20120726, end: 20120730
  11. TIANEPTINE SODIUM [Concomitant]
     Active Substance: TIANEPTINE SODIUM
     Dosage: 12.5 MG, ONCE DAILY (QD)
     Route: 048
     Dates: start: 20120510, end: 20120510
  12. TIANEPTINE SODIUM [Concomitant]
     Active Substance: TIANEPTINE SODIUM
     Dosage: 12.5 MG, ONCE DAILY (QD)
     Route: 048
     Dates: start: 20120521, end: 20120602
  13. DEXAMETHASONE. [Concomitant]
     Active Substance: DEXAMETHASONE
     Dosage: 8 MG, ONCE DAILY (QD)
     Route: 042
     Dates: start: 20120708, end: 20120709
  14. DEXAMETHASONE. [Concomitant]
     Active Substance: DEXAMETHASONE
     Dosage: 5 MG, 2X/DAY (BID)
     Route: 042
     Dates: start: 20121103, end: 20121103
  15. RANITIDINE HCL [Concomitant]
     Active Substance: RANITIDINE HYDROCHLORIDE
     Dosage: 150 MG, 2X/DAY (BID)
     Route: 048
     Dates: start: 20120710, end: 20120719
  16. CARBOPLATIN. [Concomitant]
     Active Substance: CARBOPLATIN
     Dosage: 450 MG ONCE DAILY, 135 MG ONCE DAILY
     Route: 042
     Dates: start: 20120615, end: 20120615
  17. CARBOPLATIN. [Concomitant]
     Active Substance: CARBOPLATIN
     Dosage: 135 MG AND 450 MG
     Route: 042
     Dates: start: 20121103, end: 20121103
  18. D/W [Concomitant]
     Dosage: 300 ML, ONCE DAILY (QD)
     Route: 042
     Dates: start: 20120731, end: 20120731
  19. NYSTATINE GARGLE [Concomitant]
     Dosage: ROUTE: THR
     Dates: start: 20120510, end: 20120510
  20. NYSTATINE GARGLE [Concomitant]
     Dosage: ROUTE: THR
     Dates: start: 20120713, end: 20120713
  21. VENLAFAXINE HCL [Concomitant]
     Active Substance: VENLAFAXINE HYDROCHLORIDE
     Indication: DEPRESSION
     Dosage: 37.5 MG, ONCE DAILY (QD)
     Route: 048
     Dates: start: 20120429, end: 20120507
  22. VENLAFAXINE HCL [Concomitant]
     Active Substance: VENLAFAXINE HYDROCHLORIDE
     Dosage: 37.5 MG, ONCE DAILY (QD)
     Route: 048
     Dates: start: 20120614, end: 20120626
  23. VENLAFAXINE HCL [Concomitant]
     Active Substance: VENLAFAXINE HYDROCHLORIDE
     Dosage: 37.5 MG, 2X/DAY (BID)
     Route: 048
     Dates: start: 20120629, end: 20120629
  24. LACTULOSE. [Concomitant]
     Active Substance: LACTULOSE
     Indication: CONSTIPATION
     Dosage: 20 ML, 3X/DAY (TID)
     Route: 048
     Dates: start: 20120430, end: 20120506
  25. LACTULOSE. [Concomitant]
     Active Substance: LACTULOSE
     Dosage: 1 ML, ONCE DAILY (QD)
     Route: 048
     Dates: start: 20121021, end: 20121021
  26. BENZYDAMINE HCL [Concomitant]
     Dosage: ROUTE: THR
     Dates: start: 20121021, end: 20121021
  27. ACETAMINOPHEN. [Concomitant]
     Active Substance: ACETAMINOPHEN
     Dosage: 650 MG, ONCE DAILY (QD)
     Route: 048
     Dates: start: 20121018, end: 20121018
  28. NORMAL SALINE [Concomitant]
     Active Substance: SODIUM CHLORIDE
     Dosage: 100 ML, ONCE DAILY (QD)
     Route: 042
     Dates: start: 20120427, end: 20120427
  29. NORMAL SALINE [Concomitant]
     Active Substance: SODIUM CHLORIDE
     Dosage: 100 ML ONCE DAILY, 500 ML ONCE DAILY ON 16-JUN-2012
     Route: 042
     Dates: start: 20120615, end: 20120617
  30. NORMAL SALINE [Concomitant]
     Active Substance: SODIUM CHLORIDE
     Dosage: 100 ML, ONCE DAILY (QD)
     Route: 042
     Dates: start: 20120629, end: 20120629
  31. CEFODIZIME SODIUM [Concomitant]
     Active Substance: CEFODIZIME SODIUM
     Dosage: 4 G, 2X/DAY (BID)
     Route: 042
     Dates: start: 20121016, end: 20121026
  32. MULTIVITAMIN [Concomitant]
     Active Substance: VITAMINS
     Dosage: 5 CC
     Route: 042
     Dates: start: 20120510, end: 20120511
  33. LEVO-CLOPERASTINE FENDIZOATE [Concomitant]
     Dosage: 2.124 MG, 3X/DAY (TID)
     Route: 048
     Dates: start: 201205, end: 201205
  34. LEVO-CLOPERASTINE FENDIZOATE [Concomitant]
     Dosage: 1 MG, 3X/DAY (TID)
     Route: 048
     Dates: start: 20120708, end: 20120719
  35. FAMOTIDINE. [Concomitant]
     Active Substance: FAMOTIDINE
     Indication: PROPHYLAXIS
     Dosage: 20 MG, 2X/DAY (BID)
     Route: 048
     Dates: start: 20060420, end: 20110425
  36. ERDOSTEIN [Concomitant]
     Dosage: 300 MG, 3X/DAY (TID)
     Route: 048
     Dates: start: 20120730, end: 20120813
  37. RAMOSETRON HYDROCHLORIDE [Concomitant]
     Active Substance: RAMOSETRON HYDROCHLORIDE
     Dosage: .3 MG, ONCE DAILY (QD)
     Route: 042
     Dates: start: 20120522, end: 20120522
  38. SODIUM CHLORIDE. [Concomitant]
     Active Substance: SODIUM CHLORIDE
     Dosage: 1000 ML, ONCE DAILY (QD)
     Route: 042
     Dates: start: 20121025, end: 20121025
  39. ETOPOSIDE. [Concomitant]
     Active Substance: ETOPOSIDE
     Dosage: 152 MG, ONCE DAILY (QD)
     Route: 042
     Dates: start: 20120707, end: 20120709
  40. DEXAMETHASONE. [Concomitant]
     Active Substance: DEXAMETHASONE
     Dosage: 12 MG, ONCE DAILY (QD)
     Route: 042
     Dates: start: 20120615, end: 20120615
  41. RANITIDINE HCL [Concomitant]
     Active Substance: RANITIDINE HYDROCHLORIDE
     Dosage: 150 MG, 2X/DAY (BID)
     Route: 048
     Dates: start: 20121103, end: 20121105
  42. D/W [Concomitant]
     Indication: DEHYDRATION
     Dosage: 5 %
     Route: 042
     Dates: start: 20120427, end: 20120427
  43. D/W [Concomitant]
     Dosage: 1000 ML, ONCE DAILY (QD)
     Route: 042
     Dates: start: 20120510, end: 20120511
  44. D/W [Concomitant]
     Dosage: 300 MG, ONCE DAILY (QD)
     Route: 042
     Dates: start: 20120615, end: 20120615
  45. NYSTATINE GARGLE [Concomitant]
     Dosage: ROUTE: THR
     Dates: start: 20121025, end: 20121025
  46. MAGNESIUM HYDROXIDE. [Concomitant]
     Active Substance: MAGNESIUM HYDROXIDE
     Indication: CONSTIPATION
     Dosage: 500 MG, ONCE DAILY (QD)
     Route: 048
     Dates: start: 20041104, end: 20110425
  47. MAGNESIUM HYDROXIDE. [Concomitant]
     Active Substance: MAGNESIUM HYDROXIDE
     Dosage: 1500 MG, 3X/DAY (TID)
     Route: 048
     Dates: start: 20120510, end: 20120517
  48. MAGNESIUM HYDROXIDE. [Concomitant]
     Active Substance: MAGNESIUM HYDROXIDE
     Dosage: 500 MG, 3X/DAY (TID)
     Route: 048
     Dates: start: 20120614, end: 20120618
  49. VENLAFAXINE HCL [Concomitant]
     Active Substance: VENLAFAXINE HYDROCHLORIDE
     Dosage: 37.5 MG, ONCE DAILY (QD)
     Route: 048
     Dates: start: 20120521, end: 20120602
  50. BENZYDAMINE HCL [Concomitant]
     Dosage: 100 MG, AS NEEDED (PRN)
     Route: 048
     Dates: start: 20120512, end: 20120512
  51. MULTI BLUE [Concomitant]
     Dosage: 10 ML, ONCE DAILY (QD)
     Route: 042
     Dates: start: 20121021, end: 20121021
  52. MULTI BLUE [Concomitant]
     Dosage: 10 ML, ONCE DAILY (QD)
     Route: 042
     Dates: start: 20121103, end: 20121103
  53. CERTOLIZUMAB PEGOL RA [Suspect]
     Active Substance: CERTOLIZUMAB PEGOL
     Indication: RHEUMATOID ARTHRITIS
     Dosage: DOSE: 200 MG
     Route: 058
     Dates: start: 20100707, end: 20120410
  54. METHOTREXATE [Concomitant]
     Active Substance: METHOTREXATE
     Indication: RHEUMATOID ARTHRITIS
     Dosage: 15 MG, WEEKLY (QW)
     Route: 048
     Dates: start: 20090901, end: 20120410
  55. METHOTREXATE [Concomitant]
     Active Substance: METHOTREXATE
     Dosage: 15 MG, WEEKLY (QW)
     Route: 048
     Dates: start: 20120427, end: 20120427
  56. TRANEXAMIC ACID. [Concomitant]
     Active Substance: TRANEXAMIC ACID
     Indication: PROPHYLAXIS
     Dosage: 1000 MG, ONCE DAILY (QD)
     Route: 042
     Dates: start: 20120411, end: 20120413
  57. NORMAL SALINE [Concomitant]
     Active Substance: SODIUM CHLORIDE
     Dosage: 100 ML, ONCE DAILY (QD)
     Route: 042
     Dates: start: 20120511, end: 20120512
  58. NORMAL SALINE [Concomitant]
     Active Substance: SODIUM CHLORIDE
     Dosage: 100 ML, 2X/DAY (BID)
     Route: 042
     Dates: start: 20120722, end: 20120722
  59. DEXTROSE. [Concomitant]
     Active Substance: DEXTROSE
     Indication: DEHYDRATION
     Dosage: 5 %, IN DISTILLED WATER
     Route: 042
     Dates: start: 20120411, end: 20120416
  60. CLARITHROMYCIN. [Concomitant]
     Active Substance: CLARITHROMYCIN
     Indication: PROPHYLAXIS
     Dosage: 500 MG, 2X/DAY (BID)
     Route: 048
     Dates: start: 20120411, end: 20120426
  61. CLARITHROMYCIN. [Concomitant]
     Active Substance: CLARITHROMYCIN
     Dosage: 500 MG, 2X/DAY (BID)
     Route: 048
     Dates: start: 20121016, end: 20121028
  62. ERDOSTEIN [Concomitant]
     Dosage: 300 MG, 3X/DAY (TID)
     Route: 048
     Dates: start: 20120724, end: 20120730
  63. VITIS VINIFERA EXTRACT [Concomitant]
     Dosage: 150 MG, 2X/DAY (BID)
     Route: 048
     Dates: start: 20120510, end: 20120517
  64. RAMOSETRON HYDROCHLORIDE [Concomitant]
     Active Substance: RAMOSETRON HYDROCHLORIDE
     Indication: PROPHYLAXIS
     Dosage: .3 MG, ONCE DAILY (QD)
     Route: 042
     Dates: start: 20120427, end: 20120429
  65. RAMOSETRON HYDROCHLORIDE [Concomitant]
     Active Substance: RAMOSETRON HYDROCHLORIDE
     Dosage: .1 MG, ONCE DAILY (QD)
     Route: 048
     Dates: start: 20120708, end: 20120709
  66. ETOPOSIDE. [Concomitant]
     Active Substance: ETOPOSIDE
     Indication: CHEMOTHERAPY
     Dosage: 200 MG, 2X/DAY (BID)
     Route: 042
     Dates: start: 201204, end: 20120427
  67. ETOPOSIDE. [Concomitant]
     Active Substance: ETOPOSIDE
     Dosage: 155 MG, ONCE DAILY (QD)
     Route: 042
     Dates: start: 20120830, end: 20120901
  68. DEXAMETHASONE. [Concomitant]
     Active Substance: DEXAMETHASONE
     Dosage: 8 MG, ONCE DAILY (QD)
     Route: 042
     Dates: start: 20120616, end: 20120617
  69. DEXAMETHASONE. [Concomitant]
     Active Substance: DEXAMETHASONE
     Dosage: 12 MG, ONCE DAILY (QD)
     Route: 042
     Dates: start: 20120731, end: 20120731
  70. DEXAMETHASONE. [Concomitant]
     Active Substance: DEXAMETHASONE
     Dosage: 4 MG, 2X/DAY (BID)
     Route: 048
     Dates: start: 20121104, end: 20121105
  71. RANITIDINE HCL [Concomitant]
     Active Substance: RANITIDINE HYDROCHLORIDE
     Dosage: 50 MG, ONCE DAILY (QD)
     Route: 042
     Dates: start: 20120707, end: 20120709
  72. CARBOPLATIN. [Concomitant]
     Active Substance: CARBOPLATIN
     Dosage: 135 MG OPNCE DAILY, 450 MG ONCE DAILY
     Route: 042
     Dates: start: 20120731, end: 20120731
  73. D/W [Concomitant]
     Dosage: 300 ML, ONCE DAILY (QD)
     Route: 042
     Dates: start: 20120707, end: 20120707
  74. NYSTATINE GARGLE [Concomitant]
     Dosage: ROUTE: THR
     Dates: start: 20120614, end: 20120614
  75. NYSTATINE GARGLE [Concomitant]
     Dosage: ROUTE: THR
     Dates: start: 20120629, end: 20120629
  76. MAGNESIUM HYDROXIDE. [Concomitant]
     Active Substance: MAGNESIUM HYDROXIDE
     Dosage: 1000 MG, 3X/DAY (TID)
     Route: 048
     Dates: start: 20120804, end: 20120804
  77. LACTULOSE. [Concomitant]
     Active Substance: LACTULOSE
     Dosage: 20 ML, 3X/DAY (TID)
     Route: 048
     Dates: start: 20120828, end: 20120831
  78. BENZYDAMINE HCL [Concomitant]
     Dosage: ROUTE: THR
     Dates: start: 20120730, end: 20120809
  79. NORMAL SALINE [Concomitant]
     Active Substance: SODIUM CHLORIDE
     Indication: MEDICATION DILUTION
     Dosage: BG
     Route: 042
     Dates: start: 20120411, end: 20120413
  80. NORMAL SALINE [Concomitant]
     Active Substance: SODIUM CHLORIDE
     Dosage: 100 ML, ONCE DAILY (QD)
     Route: 042
     Dates: start: 20120725, end: 20120725
  81. FAMOTIDINE. [Concomitant]
     Active Substance: FAMOTIDINE
     Dosage: 20 MG, 2X/DAY (BID)
     Route: 048
     Dates: start: 20120411, end: 20120507
  82. ERDOSTEIN [Concomitant]
     Dosage: 300 MG, ONCE DAILY (QD)
     Route: 048
     Dates: start: 20120709, end: 20120709
  83. CODEINE PHOSPHATE [Concomitant]
     Active Substance: CODEINE PHOSPHATE
     Indication: PROPHYLAXIS
     Dosage: 20 MG, ONCE DAILY (QD)
     Route: 048
     Dates: start: 20120417, end: 20120417
  84. CODEINE PHOSPHATE [Concomitant]
     Active Substance: CODEINE PHOSPHATE
     Dosage: 20 MG, ONCE DAILY (QD)
     Route: 048
     Dates: start: 20120525, end: 20120529
  85. CODEINE PHOSPHATE [Concomitant]
     Active Substance: CODEINE PHOSPHATE
     Dosage: 40 MG, 3X/DAY (TID)
     Route: 048
     Dates: start: 20120827, end: 20120917
  86. VITIS VINIFERA EXTRACT [Concomitant]
     Dosage: 150 MG, 2X/DAY (BID)
     Route: 048
     Dates: start: 20120521, end: 20120602
  87. RAMOSETRON HYDROCHLORIDE [Concomitant]
     Active Substance: RAMOSETRON HYDROCHLORIDE
     Dosage: 2 ML, ONCE DAILY (QD)
     Route: 042
     Dates: start: 20120615, end: 20120615
  88. RAMOSETRON HYDROCHLORIDE [Concomitant]
     Active Substance: RAMOSETRON HYDROCHLORIDE
     Dosage: 1 MG, ONCE DAILY (QD)
     Route: 042
     Dates: start: 20120715, end: 20120715
  89. RAMOSETRON HYDROCHLORIDE [Concomitant]
     Active Substance: RAMOSETRON HYDROCHLORIDE
     Dosage: .1 MG, ONCE DAILY (QD)
     Route: 048
     Dates: start: 20120831, end: 20120901
  90. SODIUM CHLORIDE. [Concomitant]
     Active Substance: SODIUM CHLORIDE
     Dosage: ROUTE: THR
     Dates: start: 20120629, end: 20120629
  91. SODIUM CHLORIDE. [Concomitant]
     Active Substance: SODIUM CHLORIDE
     Dosage: 1000 ML, ONCE DAILY (QD)
     Route: 042
     Dates: start: 20121021, end: 20121021
  92. DEXAMETHASONE. [Concomitant]
     Active Substance: DEXAMETHASONE
     Dosage: 12 MG, ONCE DAILY (QD)
     Route: 042
     Dates: start: 20120429, end: 20120429
  93. DEXAMETHASONE. [Concomitant]
     Active Substance: DEXAMETHASONE
     Dosage: 12 MG, ONCE DAILY (QD)
     Route: 042
     Dates: start: 20120707, end: 20120707
  94. RANITIDINE HCL [Concomitant]
     Active Substance: RANITIDINE HYDROCHLORIDE
     Indication: PROPHYLAXIS
     Dosage: 50 MG, ONCE DAILY (QD)
     Route: 042
     Dates: start: 20120427, end: 20120429
  95. NYSTATINE GARGLE [Concomitant]
     Dosage: ROUTE: THR
     Dates: start: 20120512, end: 20120512
  96. NYSTATINE GARGLE [Concomitant]
     Dosage: ROUTE: THR
     Dates: start: 20121102, end: 20121102
  97. BENZYDAMINE HCL [Concomitant]
     Dosage: ROUTE: THR
     Dates: start: 20120710, end: 20120710
  98. BENZYDAMINE HCL [Concomitant]
     Dosage: ROUTE : THR
     Dates: start: 20121016, end: 20121016
  99. MULTI BLUE [Concomitant]
     Dosage: 10 ML, ONCE DAILY (QD)
     Route: 042
     Dates: start: 20120825, end: 20120825
  100. NORMAL SALINE [Concomitant]
     Active Substance: SODIUM CHLORIDE
     Indication: FLUID REPLACEMENT
     Dosage: BG
     Route: 042
     Dates: start: 20120421, end: 20120421
  101. NORMAL SALINE [Concomitant]
     Active Substance: SODIUM CHLORIDE
     Dosage: 100 ML, 4X/DAY (QID)
     Route: 042
     Dates: start: 20120723, end: 20120724
  102. MULTIVITAMIN [Concomitant]
     Active Substance: VITAMINS
     Indication: VITAMIN SUPPLEMENTATION
     Dosage: 5 CC
     Route: 042
     Dates: start: 20120411, end: 20120413
  103. ZINC SULFATE HEPTAHYDRATE [Concomitant]
     Active Substance: ZINC SULFATE HEPTAHYDRATE
     Indication: MINERAL SUPPLEMENTATION
     Dosage: 4.39 M
     Route: 042
     Dates: start: 20120414, end: 20120414
  104. LEVO-CLOPERASTINE FENDIZOATE [Concomitant]
     Dosage: 5 ML, 3X/DAY (TID)
     Route: 048
     Dates: start: 20120511, end: 20120512
  105. FAMOTIDINE. [Concomitant]
     Active Substance: FAMOTIDINE
     Dosage: 20 MG, ONCE DAILY (QD)
     Route: 042
     Dates: start: 20121102, end: 20121102
  106. ERDOSTEIN [Concomitant]
     Dosage: 300 MG, 3X/DAY (TID)
     Route: 048
     Dates: start: 20120614, end: 20120626
  107. CODEINE PHOSPHATE [Concomitant]
     Active Substance: CODEINE PHOSPHATE
     Dosage: 20 MG, 2X/DAY (BID)
     Route: 048
     Dates: start: 20120714, end: 20120719
  108. TIANEPTINE SODIUM [Concomitant]
     Active Substance: TIANEPTINE SODIUM
     Dosage: 12.5 MG, ONCE DAILY (QD)
     Route: 048
     Dates: start: 20120628, end: 20120702
  109. VITIS VINIFERA EXTRACT [Concomitant]
     Dosage: 150 MG, 2X/DAY (BID)
     Route: 048
     Dates: start: 20120614, end: 20120618
  110. RAMOSETRON HYDROCHLORIDE [Concomitant]
     Active Substance: RAMOSETRON HYDROCHLORIDE
     Dosage: .3 MG, ONCE DAILY (QD)
     Route: 042
     Dates: start: 20120707, end: 20120707
  111. SODIUM CHLORIDE. [Concomitant]
     Active Substance: SODIUM CHLORIDE
     Indication: THERAPEUTIC PROCEDURE
     Dosage: ROUTE: THR, STRENGTH: 9 G
     Dates: start: 20120427, end: 20120427
  112. SODIUM CHLORIDE. [Concomitant]
     Active Substance: SODIUM CHLORIDE
     Dosage: ROUTE: THR, STRENGTH: 9 G
     Dates: start: 20120521, end: 20120524
  113. SODIUM CHLORIDE. [Concomitant]
     Active Substance: SODIUM CHLORIDE
     Dosage: ROUTE: THR
     Dates: start: 20120705, end: 20120705
  114. ETOPOSIDE. [Concomitant]
     Active Substance: ETOPOSIDE
     Dosage: 152 MG, 2X/DAY (BID)
     Route: 042
     Dates: start: 20120615, end: 20120615
  115. ETOPOSIDE. [Concomitant]
     Active Substance: ETOPOSIDE
     Dosage: 152 MG, ONCE DAILY (QD)
     Route: 042
     Dates: start: 20120616, end: 20120616
  116. CARBOPLATIN. [Concomitant]
     Active Substance: CARBOPLATIN
     Dosage: 724.5 MG, ONCE DAILY (QD)
     Route: 042
     Dates: start: 20120522, end: 20120522
  117. CARBOPLATIN. [Concomitant]
     Active Substance: CARBOPLATIN
     Dosage: 450 MG ONCE DAILY, 135 MG ONCE DAILY
     Route: 042
     Dates: start: 20120707, end: 20120707
  118. NYSTATINE GARGLE [Concomitant]
     Dosage: ROUTE: THR
     Dates: start: 20120427, end: 20120427
  119. NYSTATINE GARGLE [Concomitant]
     Dosage: ROUTE: THR
     Dates: start: 20120521, end: 20120521
  120. NYSTATINE GARGLE [Concomitant]
     Dosage: ROUTE: THR
     Dates: start: 20120705, end: 20120705
  121. NYSTATINE GARGLE [Concomitant]
     Dosage: ROUTE: THR
     Dates: start: 20120719, end: 20120723
  122. NYSTATINE GARGLE [Concomitant]
     Dosage: ROUTE: THR
     Dates: start: 20120730, end: 20120809
  123. NYSTATINE GARGLE [Concomitant]
     Dosage: ROUTE: THR
     Dates: start: 20121016, end: 20121016
  124. BENZYDAMINE HCL [Concomitant]
     Dosage: ROUTE: THR
     Dates: start: 20120705, end: 20120705
  125. ACETAMINOPHEN. [Concomitant]
     Active Substance: ACETAMINOPHEN
     Indication: PROPHYLAXIS
     Dosage: 650 MG, ONCE DAILY (QD)
     Route: 048
     Dates: start: 20120423, end: 20120424
  126. TRANEXAMIC ACID. [Concomitant]
     Active Substance: TRANEXAMIC ACID
     Dosage: 1000 MG, ONCE DAILY (QD)
     Route: 042
     Dates: start: 20120411, end: 20120417
  127. NORMAL SALINE [Concomitant]
     Active Substance: SODIUM CHLORIDE
     Indication: DEHYDRATION
     Dosage: BG
     Route: 042
     Dates: start: 20120416, end: 20120417
  128. NORMAL SALINE [Concomitant]
     Active Substance: SODIUM CHLORIDE
     Dosage: 500 ML ONCE DAILY AND 100 ML ONCE DAILY
     Route: 042
     Dates: start: 20120522, end: 20120524
  129. NORMAL SALINE [Concomitant]
     Active Substance: SODIUM CHLORIDE
     Dosage: 100 ML, 3X/DAY (TID)
     Route: 042
     Dates: start: 20120720, end: 20120721
  130. LEVO-CLOPERASTINE FENDIZOATE [Concomitant]
     Dosage: 5 ML, 3X/DAY (TID)
     Route: 048
     Dates: start: 20120628, end: 20120709
  131. LEVO-CLOPERASTINE FENDIZOATE [Concomitant]
     Dosage: 5 MG, 3X/DAY (TID)
     Route: 048
     Dates: start: 20120719, end: 20120730
  132. ERDOSTEIN [Concomitant]
     Indication: COUGH
     Dosage: 300 MG, 3X/DAY (TID)
     Route: 048
     Dates: start: 20120411, end: 20120507
  133. ERDOSTEIN [Concomitant]
     Dosage: 300 MG, 3X/DAY (TID)
     Route: 048
     Dates: start: 20120628, end: 20120709
  134. ERDOSTEIN [Concomitant]
     Dosage: 300 MG, 3X/DAY (TID)
     Route: 048
     Dates: start: 20121016, end: 20121113
  135. CODEINE PHOSPHATE [Concomitant]
     Active Substance: CODEINE PHOSPHATE
     Dosage: 20 MG, ONCE DAILY (QD)
     Route: 048
     Dates: start: 20120523, end: 20120523
  136. CODEINE PHOSPHATE [Concomitant]
     Active Substance: CODEINE PHOSPHATE
     Dosage: 20 MG, 3X/DAY (TID)
     Route: 048
     Dates: start: 20121016, end: 20121116
  137. TIANEPTINE SODIUM [Concomitant]
     Active Substance: TIANEPTINE SODIUM
     Indication: DEPRESSION
     Dosage: 12.5 MG, AS NEEDED (PRN)
     Route: 048
     Dates: start: 20101028, end: 20101109
  138. TIANEPTINE SODIUM [Concomitant]
     Active Substance: TIANEPTINE SODIUM
     Dosage: 12.5 MG, ONCE DAILY (QD)
     Route: 048
     Dates: start: 20120120, end: 20120423
  139. VITIS VINIFERA EXTRACT [Concomitant]
     Dosage: 150 MG, 2X/DAY (BID)
     Route: 048
     Dates: start: 20120628, end: 20120702
  140. PETHIDINE [Concomitant]
     Active Substance: MEPERIDINE
     Indication: SEDATION
     Dosage: 25 MG, ONCE DAILY (QD)
     Route: 030
     Dates: start: 20120416, end: 20120416
  141. RAMOSETRON HYDROCHLORIDE [Concomitant]
     Active Substance: RAMOSETRON HYDROCHLORIDE
     Dosage: .1 MG, ONCE DAILY (QD)
     Route: 048
     Dates: start: 20120716, end: 20120717
  142. RAMOSETRON HYDROCHLORIDE [Concomitant]
     Active Substance: RAMOSETRON HYDROCHLORIDE
     Dosage: .3 MG, ONCE DAILY (QD)
     Route: 042
     Dates: start: 20120731, end: 20120731
  143. RAMOSETRON HYDROCHLORIDE [Concomitant]
     Active Substance: RAMOSETRON HYDROCHLORIDE
     Dosage: .3 MG, ONCE DAILY (QD)
     Route: 042
     Dates: start: 20120830, end: 20120830
  144. RAMOSETRON HYDROCHLORIDE [Concomitant]
     Active Substance: RAMOSETRON HYDROCHLORIDE
     Dosage: UNK UNK, ONCE DAILY (QD)
     Route: 042
     Dates: start: 20121103, end: 20121103
  145. SODIUM CHLORIDE. [Concomitant]
     Active Substance: SODIUM CHLORIDE
     Dosage: ROUTE: THR
     Dates: start: 20120614, end: 20120614
  146. SODIUM CHLORIDE. [Concomitant]
     Active Substance: SODIUM CHLORIDE
     Dosage: 1000 ML, ONCE DAILY (QD)
     Route: 042
     Dates: start: 20121102, end: 20121103
  147. ETOPOSIDE. [Concomitant]
     Active Substance: ETOPOSIDE
     Dosage: 152 MG, 2X/DAY (BID)
     Route: 042
     Dates: start: 20120429, end: 20120429
  148. DEXAMETHASONE. [Concomitant]
     Active Substance: DEXAMETHASONE
     Dosage: 8 MG, ONCE DAILY (QD)
     Route: 042
     Dates: start: 20120522, end: 20120522
  149. RANITIDINE HCL [Concomitant]
     Active Substance: RANITIDINE HYDROCHLORIDE
     Dosage: 50 MG, ONCE DAILY (QD)
     Route: 042
     Dates: start: 20120522, end: 20120524
  150. CARBOPLATIN. [Concomitant]
     Active Substance: CARBOPLATIN
     Indication: CHEMOTHERAPY
     Dosage: 124.5 MG, 2X/DAY (BID)
     Route: 042
     Dates: start: 20120427, end: 20120429
  151. CARBOPLATIN. [Concomitant]
     Active Substance: CARBOPLATIN
     Dosage: 450 MG AND 135 MG
     Route: 042
     Dates: start: 20120830, end: 20120830
  152. NYSTATINE GARGLE [Concomitant]
     Dosage: ROUTE: THR
     Dates: start: 20121105, end: 20121105
  153. MAGNESIUM HYDROXIDE. [Concomitant]
     Active Substance: MAGNESIUM HYDROXIDE
     Dosage: 500 MG, 3X/DAY (TID)
     Route: 048
     Dates: start: 20120521, end: 20120521
  154. VENLAFAXINE HCL [Concomitant]
     Active Substance: VENLAFAXINE HYDROCHLORIDE
     Dosage: 37.5 MG, ONCE DAILY (QD)
     Route: 048
     Dates: start: 20120628, end: 20120628
  155. VENLAFAXINE HCL [Concomitant]
     Active Substance: VENLAFAXINE HYDROCHLORIDE
     Dosage: 37.5 MG, ONCE DAILY (QD)
     Route: 048
     Dates: start: 20120630, end: 20120709
  156. LACTULOSE. [Concomitant]
     Active Substance: LACTULOSE
     Dosage: 20 ML, 3X/DAY (TID)
     Route: 048
     Dates: start: 20121105, end: 20121105
  157. BENZYDAMINE HCL [Concomitant]
     Dosage: ROUTE: THR
     Dates: start: 20120614, end: 20120614
  158. BENZYDAMINE HCL [Concomitant]
     Dosage: ROUTE: THR
     Dates: start: 20121025, end: 20121025
  159. MULTI BLUE [Concomitant]
     Indication: MINERAL SUPPLEMENTATION
     Dosage: 10 ML, ONCE DAILY (QD)
     Route: 042
     Dates: start: 20120414, end: 20120414
  160. TRANEXAMIC ACID. [Concomitant]
     Active Substance: TRANEXAMIC ACID
     Dosage: 1000 MG, ONCE DAILY (QD)
     Route: 042
     Dates: start: 20120412, end: 20120413
  161. NORMAL SALINE [Concomitant]
     Active Substance: SODIUM CHLORIDE
     Dosage: 10 ML, 4X/DAY (QID)
     Route: 042
     Dates: start: 20120710, end: 20120710
  162. NORMAL SALINE [Concomitant]
     Active Substance: SODIUM CHLORIDE
     Dosage: 100 ML, ONCE DAILY (QD)
     Route: 042
     Dates: start: 20120731, end: 20120802
  163. NORMAL SALINE [Concomitant]
     Active Substance: SODIUM CHLORIDE
     Dosage: 10 ML, 4X/DAY (QID)
     Route: 042
     Dates: start: 20121016, end: 20121028
  164. MULTIVITAMIN [Concomitant]
     Active Substance: VITAMINS
     Dosage: 5 ML, ONCE DAILY (QD)
     Route: 042
     Dates: start: 20120416, end: 20120416
  165. LEVO-CLOPERASTINE FENDIZOATE [Concomitant]
     Indication: COUGH
     Dosage: 5 ML, 3X/DAY (TID)
     Route: 048
     Dates: start: 20120411, end: 20120428
  166. ERDOSTEIN [Concomitant]
     Dosage: 300 MG, 3X/DAY (TID)
     Route: 048
     Dates: start: 20120510, end: 20120517
  167. CODEINE PHOSPHATE [Concomitant]
     Active Substance: CODEINE PHOSPHATE
     Indication: COUGH
     Dosage: 20 MG, ONCE DAILY (QD)
     Route: 048
     Dates: start: 20120411, end: 20120413
  168. CODEINE PHOSPHATE [Concomitant]
     Active Substance: CODEINE PHOSPHATE
     Dosage: 20 MG, 3X/DAY (TID)
     Route: 048
     Dates: start: 20120709, end: 20120713
  169. CODEINE PHOSPHATE [Concomitant]
     Active Substance: CODEINE PHOSPHATE
     Dosage: 20 MG, 3X/DAY (TID)
     Route: 048
     Dates: start: 20120725, end: 20120725
  170. TIANEPTINE SODIUM [Concomitant]
     Active Substance: TIANEPTINE SODIUM
     Dosage: 125 MG, ONCE DAILY (QD)
     Route: 048
     Dates: start: 20120413, end: 20120507
  171. TIANEPTINE SODIUM [Concomitant]
     Active Substance: TIANEPTINE SODIUM
     Dosage: 12.5 MG, ONCE DAILY (QD)
     Route: 048
     Dates: start: 20120614, end: 20120626
  172. VITIS VINIFERA EXTRACT [Concomitant]
     Indication: PROPHYLAXIS
     Dosage: 150 MG, 2X/DAY (BID)
     Route: 048
     Dates: start: 20120413, end: 20120507
  173. RAMOSETRON HYDROCHLORIDE [Concomitant]
     Active Substance: RAMOSETRON HYDROCHLORIDE
     Dosage: .1 MG, ONCE DAILY (QD)
     Route: 048
     Dates: start: 20120523, end: 20120524
  174. SODIUM CHLORIDE. [Concomitant]
     Active Substance: SODIUM CHLORIDE
     Dosage: ROUTE: THR, 9MG
     Dates: start: 20120510, end: 20120510
  175. ETOPOSIDE. [Concomitant]
     Active Substance: ETOPOSIDE
     Dosage: 152 MG, ONCE DAILY (QD)
     Route: 042
     Dates: start: 20120428, end: 20120428
  176. ETOPOSIDE. [Concomitant]
     Active Substance: ETOPOSIDE
     Dosage: 152 MG, ONCE DAILY (QD)
     Route: 042
     Dates: start: 20120731, end: 20120802
  177. DEXAMETHASONE. [Concomitant]
     Active Substance: DEXAMETHASONE
     Dosage: 5 MG ONCE DAILY, WAS ON 4 MG ON 23-MAY-2012 TO 24-MAY-2012
     Route: 042
     Dates: start: 20120522, end: 20120524
  178. DEXAMETHASONE. [Concomitant]
     Active Substance: DEXAMETHASONE
     Dosage: 8 MG, ONCE DAILY (QD)
     Route: 042
     Dates: start: 20120428, end: 20120428
  179. DEXAMETHASONE. [Concomitant]
     Active Substance: DEXAMETHASONE
     Dosage: 12 MG, ONCE DAILY (QD)
     Route: 042
     Dates: start: 20120830, end: 20120830
  180. RANITIDINE HCL [Concomitant]
     Active Substance: RANITIDINE HYDROCHLORIDE
     Dosage: 50 MG, ONCE DAILY (QD)
     Route: 042
     Dates: start: 20120615, end: 20120617
  181. RANITIDINE HCL [Concomitant]
     Active Substance: RANITIDINE HYDROCHLORIDE
     Dosage: 150 MG, 3X/DAY (TID)
     Route: 048
     Dates: start: 20120710, end: 20120710
  182. RANITIDINE HCL [Concomitant]
     Active Substance: RANITIDINE HYDROCHLORIDE
     Dosage: 150 MG, 2X/DAY (BID)
     Route: 048
     Dates: start: 20120730, end: 20120731
  183. RANITIDINE HCL [Concomitant]
     Active Substance: RANITIDINE HYDROCHLORIDE
     Dosage: 50 MG, 2X/DAY (BID)
     Route: 048
     Dates: start: 20120731, end: 20120806
  184. D/W [Concomitant]
     Dosage: 5 %
     Route: 042
     Dates: start: 20120522, end: 20120522
  185. NYSTATINE GARGLE [Concomitant]
     Indication: PROPHYLAXIS
     Dosage: ROUTE: THR
     Dates: start: 20120430, end: 20120430
  186. MAGNESIUM HYDROXIDE. [Concomitant]
     Active Substance: MAGNESIUM HYDROXIDE
     Dosage: 500 MG, 3X/DAY (TID)
     Route: 048
     Dates: start: 20120817, end: 20120827
  187. VENLAFAXINE HCL [Concomitant]
     Active Substance: VENLAFAXINE HYDROCHLORIDE
     Dosage: 37.5 MG, ONCE DAILY (QD)
     Route: 048
     Dates: start: 20120510, end: 20120517
  188. VENLAFAXINE HCL [Concomitant]
     Active Substance: VENLAFAXINE HYDROCHLORIDE
     Dosage: 37.5 MG, ONCE DAILY (QD)
     Route: 048
     Dates: start: 20121016, end: 20121113
  189. BENZYDAMINE HCL [Concomitant]
     Indication: PROPHYLAXIS
     Dosage: ROUTE: THR
     Dates: start: 20120427, end: 20120430
  190. BENZYDAMINE HCL [Concomitant]
     Dosage: 150 MG, AS NEEDED (PRN)
     Route: 048
     Dates: start: 20120430, end: 20120430
  191. BENZYDAMINE HCL [Concomitant]
     Dosage: ROUTE: THR
     Dates: start: 20120713, end: 20120713
  192. BENZYDAMINE HCL [Concomitant]
     Dosage: ROUTE: THR
     Dates: start: 20120719, end: 20120723
  193. METHOTREXATE [Concomitant]
     Active Substance: METHOTREXATE
     Dosage: 15 MG, WEEKLY (QW)
     Route: 048
     Dates: start: 20120430, end: 20120430
  194. NORMAL SALINE [Concomitant]
     Active Substance: SODIUM CHLORIDE
     Dosage: BG
     Route: 042
     Dates: start: 20120425, end: 20120425
  195. NORMAL SALINE [Concomitant]
     Active Substance: SODIUM CHLORIDE
     Dosage: 500 ML, ONCE DAILY (QD)
     Route: 042
     Dates: start: 20120707, end: 20120709
  196. NORMAL SALINE [Concomitant]
     Active Substance: SODIUM CHLORIDE
     Dosage: 10 ML, 4X/DAY (QID)
     Route: 055
     Dates: start: 20120730, end: 20120730
  197. NORMAL SALINE [Concomitant]
     Active Substance: SODIUM CHLORIDE
     Dosage: 500 ML, 2X/DAY (BID)
     Route: 042
     Dates: start: 20120731, end: 20120802
  198. NORMAL SALINE [Concomitant]
     Active Substance: SODIUM CHLORIDE
     Dosage: 100 ML, ONCE DAILY (QD)
     Route: 042
     Dates: start: 20121102, end: 20121103
  199. NORMAL SALINE [Concomitant]
     Active Substance: SODIUM CHLORIDE
     Dosage: 10 ML, 4X/DAY (QID)
     Route: 042
     Dates: start: 20121103, end: 20121105
  200. CEFODIZIME SODIUM [Concomitant]
     Active Substance: CEFODIZIME SODIUM
     Dosage: 1 G, ONCE DAILY (QD)
     Route: 042
     Dates: start: 20121027, end: 20121027
  201. LEVO-CLOPERASTINE FENDIZOATE [Concomitant]
     Dosage: 5 ML, 3X/DAY (TID)
     Route: 048
     Dates: start: 20120521, end: 20120602
  202. LEVO-CLOPERASTINE FENDIZOATE [Concomitant]
     Dosage: 5 ML, 3X/DAY (TID)
     Route: 048
     Dates: start: 20120614, end: 20120626
  203. ERDOSTEIN [Concomitant]
     Dosage: 900 MG, 3X/DAY (TID)
     Route: 048
     Dates: start: 20120521, end: 20120602
  204. ERDOSTEIN [Concomitant]
     Dosage: 300 MG, 3X/DAY (TID)
     Route: 048
     Dates: start: 20120710, end: 20120710
  205. CODEINE PHOSPHATE [Concomitant]
     Active Substance: CODEINE PHOSPHATE
     Dosage: 20 MG, 3X/DAY (TID)
     Route: 048
     Dates: start: 20120723, end: 20120724
  206. CODEINE PHOSPHATE [Concomitant]
     Active Substance: CODEINE PHOSPHATE
     Dosage: 20 MG, 3X/DAY (TID)
     Route: 048
     Dates: start: 20120730, end: 20120730
  207. RAMOSETRON HYDROCHLORIDE [Concomitant]
     Active Substance: RAMOSETRON HYDROCHLORIDE
     Dosage: .1 MG, ONCE DAILY (QD)
     Route: 048
     Dates: start: 20120801, end: 20120802
  208. SODIUM CHLORIDE. [Concomitant]
     Active Substance: SODIUM CHLORIDE
     Dosage: ROUTE: THR
     Dates: start: 20120429, end: 20120429
  209. SODIUM CHLORIDE. [Concomitant]
     Active Substance: SODIUM CHLORIDE
     Dosage: 1000 ML, ONCE DAILY (QD)
     Route: 042
     Dates: start: 20121016, end: 20121016
  210. ETOPOSIDE. [Concomitant]
     Active Substance: ETOPOSIDE
     Dosage: 100 MG, ONCE DAILY (QD)
     Route: 042
     Dates: start: 20120522, end: 20120524
  211. DEXAMETHASONE. [Concomitant]
     Active Substance: DEXAMETHASONE
     Indication: PROPHYLAXIS
     Dosage: 12 MG, ONCE DAILY (QD)
     Route: 042
     Dates: start: 20120427, end: 20120427
  212. RANITIDINE HCL [Concomitant]
     Active Substance: RANITIDINE HYDROCHLORIDE
     Dosage: 150 MG, 2X/DAY (BID)
     Route: 048
     Dates: start: 20120719, end: 20120730
  213. NYSTATINE GARGLE [Concomitant]
     Dosage: ROUTE: THR
     Dates: start: 20120712, end: 20120712
  214. NYSTATINE GARGLE [Concomitant]
     Dosage: ROUTE: THR
     Dates: start: 20121021, end: 20121021
  215. MAGNESIUM HYDROXIDE. [Concomitant]
     Active Substance: MAGNESIUM HYDROXIDE
     Dosage: 1500 MG, 3X/DAY (TID)
     Route: 048
     Dates: start: 20120428, end: 20120507
  216. BISACODYL. [Concomitant]
     Active Substance: BISACODYL
     Indication: CONSTIPATION
     Dosage: 20 MG, ONCE DAILY (QD)
     Route: 054
     Dates: start: 20120429, end: 20120429
  217. LACTULOSE. [Concomitant]
     Active Substance: LACTULOSE
     Dosage: 20 ML, 3X/DAY (TID)
     Route: 048
     Dates: start: 20120725, end: 20120729
  218. BENZYDAMINE HCL [Concomitant]
     Dosage: 100 MG, AS NEEDED (PRN)
     Route: 048
     Dates: start: 20120521, end: 20120524
  219. BENZYDAMINE HCL [Concomitant]
     Dosage: 100 MG/ 150 MG
     Route: 048
     Dates: start: 20120510, end: 20120510
  220. BENZYDAMINE HCL [Concomitant]
     Dosage: ROUTE: THR
     Dates: start: 20121102, end: 20121102
  221. MULTI BLUE [Concomitant]
     Dosage: 10 ML, ONCE DAILY (QD)
     Route: 042
     Dates: start: 20120721, end: 20120721

REACTIONS (2)
  - Lung neoplasm malignant [Fatal]
  - Leukopenia [Recovered/Resolved]

NARRATIVE: CASE EVENT DATE: 20120411
